FAERS Safety Report 8987314 (Version 1)
Quarter: 2012Q4

REPORT INFORMATION
  Report Type: Report from Study
  Country: RU (occurrence: RU)
  Receive Date: 20121226
  Receipt Date: 20121226
  Transmission Date: 20130627
  Serious: Yes (Other)
  Sender: FDA-Public Use
  Company Number: RU-ROCHE-1167457

PATIENT
  Age: 78 Year
  Sex: Female

DRUGS (13)
  1. CAPECITABINE [Suspect]
     Indication: BREAST CANCER
     Dosage: 2500 mg/m2 daily -3500 mg for 2 weeks with further 7-day break
     Route: 048
     Dates: start: 200603
  2. CAPECITABINE [Suspect]
     Dosage: dose redused
     Route: 048
     Dates: end: 200605
  3. CAPECITABINE [Suspect]
     Dosage: 2000 mg/m2 daily -3500 mg for 2 weeks,followed by a week break
     Route: 048
  4. CAPECITABINE [Suspect]
     Dosage: 2000 mg/m2 daily at a dose of 4000 mg for 2 weeks
     Route: 048
     Dates: start: 201103, end: 201108
  5. CAPECITABINE [Suspect]
     Dosage: 1500 mg/m2 daily- 3000 mg for 2 weeks with redused dose
     Route: 048
     Dates: start: 20111125
  6. FEMARA [Concomitant]
     Dosage: 250 mg IM every 28 days
     Route: 030
     Dates: start: 201201, end: 201205
  7. PACLITAXEL [Concomitant]
     Dosage: 175 mg/m2 -330 mg, every 3 weeks
     Route: 042
  8. FULVESTRANT [Concomitant]
     Dosage: every 28 days
     Route: 030
     Dates: start: 200807, end: 200812
  9. FULVESTRANT [Concomitant]
     Dosage: 250 mg,every 28 days
     Route: 030
     Dates: start: 201205, end: 201209
  10. MITOMYCIN [Concomitant]
     Dosage: 8 mg/m2- 16 mg IV in the 1st day
     Route: 042
  11. MITOXANTRONE [Concomitant]
     Dosage: 8 mg/m2 -16 mg
     Route: 042
  12. METHOTREXATE [Concomitant]
     Dosage: 30 mg/m2- 60 mg IV in the 1 day
     Route: 065
  13. ENDOXAN [Concomitant]
     Dosage: per os
     Route: 065
     Dates: start: 201205, end: 201209

REACTIONS (8)
  - Haematotoxicity [Unknown]
  - Calculus urinary [Unknown]
  - Renal failure [Unknown]
  - Disease progression [Unknown]
  - Neuropathy peripheral [Unknown]
  - Nausea [Unknown]
  - Vomiting [Unknown]
  - Asthenia [Unknown]
